FAERS Safety Report 15241065 (Version 1)
Quarter: 2018Q3

REPORT INFORMATION
  Report Type: Spontaneous
  Country: US (occurrence: US)
  Receive Date: 20180804
  Receipt Date: 20180804
  Transmission Date: 20181010
  Serious: Yes (Hospitalization, Other)
  Sender: FDA-Public Use
  Company Number: US-SA-2018SA210260

PATIENT
  Age: 64 Year
  Sex: Male

DRUGS (1)
  1. LEMTRADA [Suspect]
     Active Substance: ALEMTUZUMAB
     Indication: MULTIPLE SCLEROSIS
     Dosage: UNK
     Route: 041
     Dates: start: 20170807, end: 20170811

REACTIONS (4)
  - Paraplegia [Unknown]
  - Renal cell carcinoma [Unknown]
  - Asthenia [Unknown]
  - Mass [Unknown]
